FAERS Safety Report 5520142-7 (Version None)
Quarter: 2007Q4

REPORT INFORMATION
  Report Type: 
  Country: None (occurrence: None)
  Receive Date: 20071116
  Receipt Date: 20071103
  Transmission Date: 20080405
  Serious: Yes (Hospitalization)
  Sender: FDA-Public Use
  Company Number: BR-BRISTOL-MYERS SQUIBB COMPANY-13930177

PATIENT
  Age: 56 Year
  Sex: Female
  Weight: 64 kg

DRUGS (8)
  1. ORENCIA FOR INJ [Suspect]
     Indication: RHEUMATOID ARTHRITIS
     Route: 042
     Dates: start: 20070921, end: 20070921
  2. ADALIMUMAB [Suspect]
     Dates: end: 20070831
  3. METHOTREXATE [Concomitant]
     Route: 048
  4. PREDNISOLONE [Concomitant]
     Route: 048
  5. FOLIC ACID [Concomitant]
     Route: 048
  6. VITAMIN D [Concomitant]
  7. CALCIUM [Concomitant]
  8. ALENDRONATE SODIUM [Concomitant]

REACTIONS (2)
  - NEPHROLITHIASIS [None]
  - PNEUMONIA [None]
